FAERS Safety Report 12917440 (Version 1)
Quarter: 2016Q4

REPORT INFORMATION
  Report Type: Spontaneous
  Country: US (occurrence: US)
  Receive Date: 20161107
  Receipt Date: 20161107
  Transmission Date: 20170207
  Serious: No
  Sender: FDA-Public Use
  Company Number: US-PFIZER INC-2016515894

PATIENT
  Age: 39 Year
  Sex: Female
  Weight: 55 kg

DRUGS (1)
  1. LYRICA [Suspect]
     Active Substance: PREGABALIN
     Indication: TRIGEMINAL NEURALGIA
     Dosage: 75 MG, 2X/DAY
     Dates: start: 201605, end: 20161101

REACTIONS (7)
  - Disorientation [Not Recovered/Not Resolved]
  - Condition aggravated [Unknown]
  - Pain [Not Recovered/Not Resolved]
  - Memory impairment [Unknown]
  - Trigeminal neuralgia [Unknown]
  - Disturbance in attention [Not Recovered/Not Resolved]
  - Tremor [Not Recovered/Not Resolved]

NARRATIVE: CASE EVENT DATE: 2016
